FAERS Safety Report 19508096 (Version 2)
Quarter: 2022Q2

REPORT INFORMATION
  Report Type: Spontaneous
  Country: GB (occurrence: GB)
  Receive Date: 20210708
  Receipt Date: 20220419
  Transmission Date: 20220721
  Serious: Yes (Other)
  Sender: FDA-Public Use
  Company Number: GB-TAKEDA-2021TUS041027

PATIENT
  Age: 29 Year
  Sex: Female

DRUGS (2)
  1. FIRAZYR [Suspect]
     Active Substance: ICATIBANT ACETATE
     Indication: Hereditary angioedema
     Dosage: UNK
     Route: 058
     Dates: start: 201901
  2. FIRAZYR [Suspect]
     Active Substance: ICATIBANT ACETATE
     Indication: Hereditary angioedema
     Dosage: UNK
     Route: 058
     Dates: start: 201901

REACTIONS (9)
  - Laryngeal oedema [Unknown]
  - Dental operation [Unknown]
  - Injection site erythema [Unknown]
  - Asthenia [Unknown]
  - Fatigue [Unknown]
  - Face oedema [Unknown]
  - Injection site oedema [Unknown]
  - Injection site pain [Unknown]
  - Off label use [Unknown]
